FAERS Safety Report 18086565 (Version 1)
Quarter: 2020Q3

REPORT INFORMATION
  Report Type: Spontaneous
  Country: US (occurrence: US)
  Receive Date: 20200728
  Receipt Date: 20200728
  Transmission Date: 20201103
  Serious: No
  Sender: FDA-Public Use
  Company Number: None

PATIENT
  Age: 62 Year
  Sex: Male
  Weight: 78.8 kg

DRUGS (3)
  1. RITUXIMAB. [Suspect]
     Active Substance: RITUXIMAB
     Indication: NON-HODGKIN^S LYMPHOMA
     Dosage: ?          OTHER FREQUENCY:Q28D;?
     Route: 042
     Dates: start: 20200723, end: 20200723
  2. DIPHENHYDRAMINE 25MG IN 50ML NS [Concomitant]
     Dates: start: 20200723, end: 20200723
  3. ACETAMINOPHEN 650MG TAB [Concomitant]
     Dates: start: 20200723, end: 20200723

REACTIONS (3)
  - Infusion related reaction [None]
  - Back pain [None]
  - Feeling hot [None]

NARRATIVE: CASE EVENT DATE: 20200723
